FAERS Safety Report 11060935 (Version 2)
Quarter: 2015Q2

REPORT INFORMATION
  Report Type: Spontaneous
  Country: PL (occurrence: PL)
  Receive Date: 20150424
  Receipt Date: 20150506
  Transmission Date: 20150821
  Serious: Yes (Hospitalization)
  Sender: FDA-Public Use
  Company Number: PHHY2015PL047490

PATIENT
  Age: 28 Year
  Sex: Female

DRUGS (1)
  1. AMOXICILLIN. [Suspect]
     Active Substance: AMOXICILLIN
     Indication: UPPER RESPIRATORY TRACT INFECTION
     Route: 048

REACTIONS (11)
  - Sensory disturbance [Unknown]
  - Gait disturbance [Unknown]
  - Dysphagia [Unknown]
  - Ataxia [Unknown]
  - Muscular weakness [Unknown]
  - Guillain-Barre syndrome [Recovered/Resolved]
  - Paresis [Unknown]
  - Dyspnoea [Unknown]
  - Hypoaesthesia oral [Unknown]
  - Dizziness [Unknown]
  - Maternal exposure during pregnancy [Recovered/Resolved]
